FAERS Safety Report 25942093 (Version 2)
Quarter: 2025Q4

REPORT INFORMATION
  Report Type: Spontaneous
  Country: EU (occurrence: EU)
  Receive Date: 20251020
  Receipt Date: 20251114
  Transmission Date: 20260118
  Serious: Yes (Other)
  Sender: IDORSIA PHARMACEUTICALS
  Company Number: None

PATIENT
  Sex: Female

DRUGS (6)
  1. QUVIVIQ [Suspect]
     Active Substance: DARIDOREXANT
     Indication: Insomnia
     Dosage: UNK
     Route: 065
     Dates: start: 20250205
  2. QUVIVIQ [Suspect]
     Active Substance: DARIDOREXANT
     Dosage: 50 MG
     Route: 065
     Dates: start: 20250510
  3. IMOVANE [Concomitant]
     Active Substance: ZOPICLONE
     Indication: Insomnia
     Dosage: 1 AS NEEDED MAX 3/WEEK
  4. PROPIOMAZINE [Concomitant]
     Active Substance: PROPIOMAZINE
     Indication: Insomnia
     Dosage: 0.5 -1 A NEEDED
  5. UBIDECARENONE [Concomitant]
     Active Substance: UBIDECARENONE
     Indication: Muscular weakness
     Dosage: 200 MG, BID
  6. UBIDECARENONE [Concomitant]
     Active Substance: UBIDECARENONE
     Indication: Maternally inherited diabetes and deafness

REACTIONS (11)
  - Hypoacusis [Not Recovered/Not Resolved]
  - Tinnitus [Recovering/Resolving]
  - Muscle disorder [Recovered/Resolved]
  - Coordination abnormal [Recovered/Resolved]
  - Muscle strength abnormal [Recovered/Resolved]
  - Chills [Recovering/Resolving]
  - Fatigue [Recovered/Resolved]
  - Myalgia [Recovered/Resolved]
  - Tremor [Recovering/Resolving]
  - Headache [Recovering/Resolving]
  - Feeling abnormal [Not Recovered/Not Resolved]

NARRATIVE: CASE EVENT DATE: 20250101
